FAERS Safety Report 21750779 (Version 1)
Quarter: 2022Q4

REPORT INFORMATION
  Report Type: Report from Study
  Country: US (occurrence: US)
  Receive Date: 20221219
  Receipt Date: 20221219
  Transmission Date: 20230113
  Serious: No
  Sender: FDA-Public Use
  Company Number: US-ABBVIE-4188598

PATIENT
  Age: 36 Year
  Sex: Male

DRUGS (1)
  1. SKYRIZI [Suspect]
     Active Substance: RISANKIZUMAB-RZAA
     Indication: Psoriasis
     Route: 058
     Dates: start: 20211112

REACTIONS (8)
  - Cough [Unknown]
  - General physical health deterioration [Unknown]
  - Therapeutic response shortened [Unknown]
  - Psoriasis [Unknown]
  - Impaired work ability [Unknown]
  - Wheezing [Unknown]
  - Loss of personal independence in daily activities [Unknown]
  - Infection [Unknown]

NARRATIVE: CASE EVENT DATE: 20221001
